FAERS Safety Report 22135892 (Version 1)
Quarter: 2023Q1

REPORT INFORMATION
  Report Type: Spontaneous
  Country: US (occurrence: None)
  Receive Date: 20230323
  Receipt Date: 20230323
  Transmission Date: 20230417
  Serious: No
  Sender: FDA-Public Use
  Company Number: None

PATIENT
  Age: 72 Year
  Sex: Male
  Weight: 69.75 kg

DRUGS (5)
  1. EQUATE LUBRICANT EYE DROPS [Suspect]
     Active Substance: POLYETHYLENE GLYCOL 400\PROPYLENE GLYCOL
     Indication: Dry eye
     Dosage: 2 DROPPS AS NEEDED OPHTHALMIC?
     Route: 047
     Dates: start: 20221210, end: 20221210
  2. FAMOTIDINE [Concomitant]
     Active Substance: FAMOTIDINE
  3. LISINOPRIL [Concomitant]
     Active Substance: LISINOPRIL
  4. PROBIOTICS NOS [Concomitant]
     Active Substance: PROBIOTICS NOS
  5. VITAMIN D [Concomitant]
     Active Substance: VITAMIN D NOS

REACTIONS (9)
  - Eye irritation [None]
  - Eye pain [None]
  - Ocular discomfort [None]
  - Product contamination [None]
  - Product lot number issue [None]
  - Product quality issue [None]
  - Recalled product administered [None]
  - Product label issue [None]
  - Product label confusion [None]

NARRATIVE: CASE EVENT DATE: 20221210
